FAERS Safety Report 7985697-1 (Version None)
Quarter: 2011Q4

REPORT INFORMATION
  Report Type: 
  Country: None (occurrence: None)
  Receive Date: 20111216
  Receipt Date: 20111216
  Transmission Date: 20120403
  Serious: No
  Sender: FDA-Public Use
  Company Number: None

PATIENT
  Sex: Female
  Weight: 69.853 kg

DRUGS (1)
  1. CYTARABINE [Suspect]
     Indication: ACUTE MYELOID LEUKAEMIA
     Dosage: 350MG
     Route: 041
     Dates: start: 20111206, end: 20111212

REACTIONS (3)
  - VOMITING [None]
  - DIARRHOEA [None]
  - NAUSEA [None]
